FAERS Safety Report 8064855-4 (Version None)
Quarter: 2012Q1

REPORT INFORMATION
  Report Type: 
  Country: None (occurrence: None)
  Receive Date: 20120124
  Receipt Date: 20120117
  Transmission Date: 20120608
  Serious: Yes (Hospitalization)
  Sender: FDA-Public Use
  Company Number: US-BIOGENIDEC-2011BI040757

PATIENT
  Age: 29 Year
  Sex: Male

DRUGS (2)
  1. GILENYA [Concomitant]
     Indication: MULTIPLE SCLEROSIS
  2. TYSABRI [Suspect]
     Indication: MULTIPLE SCLEROSIS
     Route: 042
     Dates: start: 20110429, end: 20110801

REACTIONS (2)
  - MULTIPLE SCLEROSIS RELAPSE [None]
  - OSTEONECROSIS [None]
